FAERS Safety Report 18977850 (Version 1)
Quarter: 2021Q1

REPORT INFORMATION
  Report Type: Spontaneous
  Country: CN (occurrence: CN)
  Receive Date: 20210306
  Receipt Date: 20210306
  Transmission Date: 20210420
  Serious: Yes (Other)
  Sender: FDA-Public Use
  Company Number: NVSC2021CN049706

PATIENT
  Age: 56 Year
  Sex: Female
  Weight: 65 kg

DRUGS (1)
  1. ACLASTA [Suspect]
     Active Substance: ZOLEDRONIC ACID
     Indication: OSTEOPOROSIS
     Dosage: 0.5 MG, UNKNOWN
     Route: 042
     Dates: start: 20210112, end: 20210112

REACTIONS (6)
  - Arthralgia [Recovered/Resolved]
  - Nausea [Recovering/Resolving]
  - Myalgia [Recovering/Resolving]
  - Abdominal discomfort [Recovering/Resolving]
  - Pyrexia [Recovered/Resolved]
  - Vomiting [Recovering/Resolving]

NARRATIVE: CASE EVENT DATE: 20210112
